FAERS Safety Report 5803739-6 (Version None)
Quarter: 2008Q3

REPORT INFORMATION
  Report Type: 
  Country: None (occurrence: None)
  Receive Date: 20080708
  Receipt Date: 20071203
  Transmission Date: 20090109
  Serious: No
  Sender: FDA-Public Use
  Company Number: US-AMGEN-KDL255095

PATIENT
  Sex: Male

DRUGS (2)
  1. KINERET [Suspect]
     Indication: RHEUMATOID ARTHRITIS
     Route: 058
     Dates: start: 20071112
  2. METHOTREXATE [Concomitant]
     Route: 048
     Dates: start: 20030101

REACTIONS (6)
  - FURUNCLE [None]
  - INJECTION SITE ERYTHEMA [None]
  - INJECTION SITE RASH [None]
  - INJURY [None]
  - RHEUMATOID ARTHRITIS [None]
  - SKIN LACERATION [None]
